FAERS Safety Report 8567704-0 (Version None)
Quarter: 2012Q3

REPORT INFORMATION
  Report Type: 
  Country: None (occurrence: None)
  Receive Date: 20120803
  Receipt Date: 20120727
  Transmission Date: 20120928
  Serious: Yes (Congenital Anomaly)
  Sender: FDA-Public Use
  Company Number: US-GLAXOSMITHKLINE-A0976997A

PATIENT
  Sex: Male
  Weight: 1.7 kg

DRUGS (6)
  1. MULTI-VITAMINS [Concomitant]
  2. BENADRYL [Concomitant]
  3. REGLAN [Concomitant]
  4. PAXIL [Suspect]
     Indication: DEPRESSION
     Dosage: 20MG PER DAY
     Route: 064
  5. PREVACID [Concomitant]
  6. SEPTRA [Concomitant]

REACTIONS (4)
  - AUTISM [None]
  - SCOLIOSIS [None]
  - FOETAL EXPOSURE DURING PREGNANCY [None]
  - CLEFT LIP AND PALATE [None]
